FAERS Safety Report 8775803 (Version 5)
Quarter: 2012Q4

REPORT INFORMATION
  Report Type: Report from Study
  Country: CA (occurrence: CA)
  Receive Date: 20120910
  Receipt Date: 20121226
  Transmission Date: 20130627
  Serious: Yes (Death, Other)
  Sender: FDA-Public Use
  Company Number: CA-ROCHE-1105646

PATIENT
  Age: 57 None
  Sex: Female

DRUGS (5)
  1. VEMURAFENIB [Suspect]
     Indication: METASTATIC MALIGNANT MELANOMA
     Route: 048
     Dates: start: 201208
  2. VEMURAFENIB [Suspect]
     Route: 048
     Dates: start: 20120817
  3. VEMURAFENIB [Suspect]
     Route: 048
     Dates: start: 20120821
  4. VEMURAFENIB [Suspect]
     Route: 048
     Dates: start: 201211, end: 2012
  5. NALTREXONE [Concomitant]
     Indication: MALIGNANT MELANOMA

REACTIONS (18)
  - Convulsion [Fatal]
  - Heart rate increased [Fatal]
  - Convulsion [Recovered/Resolved]
  - Heart rate increased [Recovered/Resolved]
  - Heart rate irregular [Unknown]
  - Chest discomfort [Recovered/Resolved]
  - Electrocardiogram QT prolonged [Recovered/Resolved]
  - Dyspnoea [Recovered/Resolved]
  - Feeling hot [Not Recovered/Not Resolved]
  - Erythema [Not Recovered/Not Resolved]
  - Rash [Not Recovered/Not Resolved]
  - Pruritus [Not Recovered/Not Resolved]
  - Pain in extremity [Not Recovered/Not Resolved]
  - Swelling [Not Recovered/Not Resolved]
  - Oedema peripheral [Recovered/Resolved]
  - Alopecia [Recovered/Resolved]
  - Disease progression [Not Recovered/Not Resolved]
  - Drug ineffective [Unknown]
